FAERS Safety Report 18574857 (Version 2)
Quarter: 2020Q4

REPORT INFORMATION
  Report Type: Other
  Country: US (occurrence: US)
  Receive Date: 20201203
  Receipt Date: 20201204
  Transmission Date: 20210114
  Serious: No
  Sender: FDA-Public Use
  Company Number: US-ROCHE-2726048

PATIENT
  Sex: Male

DRUGS (20)
  1. SINGULAIR [Concomitant]
     Active Substance: MONTELUKAST SODIUM
     Dosage: TAKE 10 MG BY MOUTH EVERY NIGHT AT BEDTIME
     Route: 048
  2. ALBUTEROL HFA [Concomitant]
     Active Substance: ALBUTEROL SULFATE
     Indication: WHEEZING
  3. KEPPRA [Concomitant]
     Active Substance: LEVETIRACETAM
     Dosage: TAKE 1000MG BID THEREAFTER
     Route: 048
  4. KEPPRA [Concomitant]
     Active Substance: LEVETIRACETAM
     Dosage: TAKE 500 MG DAILY X 5 DAYS
     Route: 048
  5. ALBUTEROL HFA [Concomitant]
     Active Substance: ALBUTEROL SULFATE
     Indication: COUGH
  6. CRESTOR [Concomitant]
     Active Substance: ROSUVASTATIN CALCIUM
     Dosage: TAKE 20 MG BY MOUTH 1 TIME PER DAY
     Route: 048
  7. ESBRIET [Suspect]
     Active Substance: PIRFENIDONE
     Indication: SEIZURE
  8. ALBUTEROL HFA [Concomitant]
     Active Substance: ALBUTEROL SULFATE
     Indication: DYSPNOEA
     Dosage: INHALE 1-2 PUFFS ORALLY EVERY 4 HOURS AS NEEDED FOR SHORTNESS OF BREATH, WHEEZING OR COUGH. SHAKE WE
     Route: 055
  9. ESBRIET [Suspect]
     Active Substance: PIRFENIDONE
     Indication: IDIOPATHIC PULMONARY FIBROSIS
     Dosage: TAKE 3 CAPSULE(S) BY MOUTH 3 TIMES A DAY
     Route: 048
  10. ASPIRIN. [Concomitant]
     Active Substance: ASPIRIN
     Dosage: TAKE 81MG BY MOUTH 1 TIME PER DAY
     Route: 048
  11. ASMANEX [Concomitant]
     Active Substance: MOMETASONE FUROATE
     Dosage: 2 PUFFS ORALLY 2 TIMES A DAY
     Route: 055
  12. KEPPRA [Concomitant]
     Active Substance: LEVETIRACETAM
     Dosage: 500MG BID X 5 DAYS
     Route: 048
  13. PRILOSEC [Concomitant]
     Active Substance: OMEPRAZOLE MAGNESIUM
     Dosage: TAKE BY MOUTH 2 TIMES A DAY BEFORE MEALS
     Route: 048
  14. PHENOBARBITAL. [Concomitant]
     Active Substance: PHENOBARBITAL
     Dosage: TAKE 2 TABLETS BY MOUTH EVERY NIGHT AT BEDTIME
     Route: 048
  15. NORVASC [Concomitant]
     Active Substance: AMLODIPINE BESYLATE
     Dosage: TAKE 10 MG BY MOUTH 1 TIME PER DAY
     Route: 048
  16. CLARITIN [Concomitant]
     Active Substance: LORATADINE
     Dosage: TAKE 10 MG BY MOUTH 1 TIME PER DAY
     Route: 048
  17. PROVENTIL [Concomitant]
     Active Substance: ALBUTEROL
     Indication: WHEEZING
  18. PROVENTIL [Concomitant]
     Active Substance: ALBUTEROL
     Indication: COUGH
  19. KEPPRA [Concomitant]
     Active Substance: LEVETIRACETAM
     Dosage: TAKE 500 MG AM AND 500 MG HS X 5 DAYS
     Route: 048
  20. PROVENTIL [Concomitant]
     Active Substance: ALBUTEROL
     Indication: DYSPNOEA
     Dosage: INHALE 1 NEBULE BY NEBULIZATION 4 TIMES A DAY AS NEEDED FOR SHORTNESS OF BREATH, WHEEZING OR COUGH
     Route: 055

REACTIONS (1)
  - COVID-19 [Unknown]
